FAERS Safety Report 18037079 (Version 1)
Quarter: 2020Q3

REPORT INFORMATION
  Report Type: Spontaneous
  Country: RO (occurrence: RO)
  Receive Date: 20200717
  Receipt Date: 20200717
  Transmission Date: 20201103
  Serious: Yes (Hospitalization)
  Sender: FDA-Public Use
  Company Number: RO-ACCORD-190871

PATIENT
  Age: 65 Year
  Sex: Female

DRUGS (5)
  1. METFORMIN [Concomitant]
     Active Substance: METFORMIN HYDROCHLORIDE
     Dosage: 1000 MG/ DAY
     Dates: start: 20170315
  2. METHOTREXATE. [Suspect]
     Active Substance: METHOTREXATE
     Indication: PRODUCT USED FOR UNKNOWN INDICATION
     Dosage: 7,5 MG/ WEEK
     Route: 058
     Dates: start: 20131120
  3. ALFACALCIDOL [Concomitant]
     Active Substance: ALFACALCIDOL
     Dosage: 1 MCG/ DAY
     Dates: start: 20170613
  4. BISOPROLOL [Concomitant]
     Active Substance: BISOPROLOL
     Dosage: 2,5 MG/ DAY
     Dates: start: 20180508
  5. INDAPAMIDE. [Concomitant]
     Active Substance: INDAPAMIDE
     Dosage: 1,5 MG/ DAY
     Dates: start: 20180508

REACTIONS (3)
  - Back pain [Recovered/Resolved]
  - Renal colic [Recovered/Resolved]
  - Nausea [Recovered/Resolved]

NARRATIVE: CASE EVENT DATE: 20200121
